FAERS Safety Report 10018660 (Version 2)
Quarter: 2014Q2

REPORT INFORMATION
  Report Type: Spontaneous
  Country: US (occurrence: US)
  Receive Date: 20140318
  Receipt Date: 20140602
  Transmission Date: 20141212
  Serious: No
  Sender: FDA-Public Use
  Company Number: US-B.I. PHARMACEUTICALS,INC./RIDGEFIELD-2014-BI-10847BP

PATIENT
  Age: 54 Year
  Sex: Male
  Weight: 68 kg

DRUGS (5)
  1. TRADJENTA [Suspect]
     Indication: TYPE 2 DIABETES MELLITUS
     Dosage: 5 MG
     Route: 048
     Dates: start: 20140217, end: 20140307
  2. NOVOLOG 70/30 INSULIN [Concomitant]
     Indication: TYPE 2 DIABETES MELLITUS
     Dosage: FORMULATION: INJECTION; DOSE PER APLICATION: 2000 IU / 1400
     Route: 058
     Dates: start: 20140311
  3. METFORMIN [Concomitant]
     Indication: TYPE 2 DIABETES MELLITUS
     Dosage: 1000 MG
     Route: 065
     Dates: start: 20131004, end: 20140217
  4. GLIMEPRIDE [Concomitant]
     Indication: TYPE 2 DIABETES MELLITUS
     Dosage: 4 MG
     Route: 048
     Dates: start: 20131004
  5. QUINAPRIL [Concomitant]
     Indication: HYPERTENSION
     Dosage: 20 MG
     Route: 065

REACTIONS (1)
  - Abdominal distension [Not Recovered/Not Resolved]
